FAERS Safety Report 13773267 (Version 1)
Quarter: 2017Q3

REPORT INFORMATION
  Report Type: Spontaneous
  Country: US (occurrence: US)
  Receive Date: 20170720
  Receipt Date: 20170720
  Transmission Date: 20171127
  Serious: No
  Sender: FDA-Public Use
  Company Number: US-GALDERMA-US16005880

PATIENT
  Age: 67 Year
  Sex: Female

DRUGS (1)
  1. DOXYCYCLINE (DOXYCYCLINE) CAPSULES, 40 MG [Suspect]
     Active Substance: DOXYCYCLINE
     Indication: ROSACEA
     Dosage: 40 MG
     Route: 048
     Dates: start: 201604, end: 201605

REACTIONS (3)
  - Skin burning sensation [Recovered/Resolved]
  - Drug ineffective [Recovered/Resolved]
  - Rosacea [Recovered/Resolved]
